FAERS Safety Report 9165240 (Version 1)
Quarter: 2013Q1

REPORT INFORMATION
  Report Type: Spontaneous
  Country: DE (occurrence: DE)
  Receive Date: 20130315
  Receipt Date: 20130315
  Transmission Date: 20140127
  Serious: Yes (Other)
  Sender: FDA-Public Use
  Company Number: DE-BAYER-2013-030032

PATIENT
  Sex: Female

DRUGS (1)
  1. BETAFERON [Suspect]
     Dosage: 16 MIU, UNK

REACTIONS (10)
  - Syncope [None]
  - Cough [None]
  - Influenza like illness [None]
  - Vomiting [None]
  - Headache [None]
  - Haematoma [None]
  - Memory impairment [None]
  - Depression [None]
  - Back pain [None]
  - Herpes virus infection [None]
